APPROVED DRUG PRODUCT: MOUNJARO
Active Ingredient: TIRZEPATIDE
Strength: 20MG/2.4ML (8.33MG/ML)
Dosage Form/Route: SOLUTION;SUBCUTANEOUS
Application: N215866 | Product #014
Applicant: ELI LILLY AND CO
Approved: Jan 7, 2026 | RLD: Yes | RS: Yes | Type: RX

PATENTS:
Patent 12343382 | Expires: Jul 22, 2039
Patent 12343382 | Expires: Jul 22, 2039
Patent 12343382 | Expires: Jul 22, 2039
Patent 12295987 | Expires: Dec 30, 2041
Patent 12295987 | Expires: Dec 30, 2041
Patent 9474780 | Expires: Jan 5, 2036
Patent 12343382 | Expires: Jul 22, 2039
Patent 12343382 | Expires: Jul 22, 2039
Patent 12343382 | Expires: Jul 22, 2039